FAERS Safety Report 9696641 (Version 2)
Quarter: 2014Q1

REPORT INFORMATION
  Report Type: Spontaneous
  Country: GB (occurrence: GB)
  Receive Date: 20131119
  Receipt Date: 20140114
  Transmission Date: 20141002
  Serious: Yes (Life-Threatening, Hospitalization)
  Sender: FDA-Public Use
  Company Number: GB-ROCHE-1302364

PATIENT
  Age: 54 Year
  Sex: Female
  Weight: 71.5 kg

DRUGS (5)
  1. PERJETA [Suspect]
     Indication: BREAST CANCER METASTATIC
     Dosage: 4TH CYCLE
     Route: 042
     Dates: start: 20130822
  2. HERCEPTIN [Suspect]
     Indication: BREAST CANCER METASTATIC
     Dosage: 4TH CYCLE
     Route: 042
     Dates: start: 20130822
  3. DOCETAXEL [Suspect]
     Indication: BREAST CANCER METASTATIC
     Dosage: 4TH CYCLE
     Route: 042
     Dates: start: 20130822, end: 20131205
  4. DEXAMETHASONE [Concomitant]
     Route: 065
     Dates: start: 20130822, end: 20131206
  5. METOCLOPRAMIDE [Concomitant]
     Dosage: 10-20 MG
     Route: 048
     Dates: start: 20130822, end: 20131206

REACTIONS (1)
  - Pulmonary embolism [Recovered/Resolved]
